FAERS Safety Report 5445144-0 (Version None)
Quarter: 2007Q3

REPORT INFORMATION
  Report Type: 
  Country: None (occurrence: None)
  Receive Date: 20070730
  Receipt Date: 20070308
  Transmission Date: 20080115
  Serious: Yes (Hospitalization)
  Sender: FDA-Public Use
  Company Number: 237461

PATIENT
  Age: 52 Year
  Sex: Female

DRUGS (7)
  1. RITUXAN [Suspect]
     Indication: RHEUMATOID ARTHRITIS
     Dosage: 1000 MG, INTRAVENOUS
     Route: 042
     Dates: start: 20061114
  2. MTX (METHOTREXATE) [Concomitant]
  3. LODINE [Concomitant]
  4. FOLATE (FOLATE SODIUM) [Concomitant]
  5. ISONIAZID [Concomitant]
  6. VITAMIN B6 [Concomitant]
  7. MACROBID [Concomitant]

REACTIONS (1)
  - BRONCHITIS [None]
